FAERS Safety Report 16426408 (Version 1)
Quarter: 2019Q2

REPORT INFORMATION
  Report Type: Spontaneous
  Country: FR (occurrence: FR)
  Receive Date: 20190613
  Receipt Date: 20190613
  Transmission Date: 20190711
  Serious: Yes (Hospitalization, Other)
  Sender: FDA-Public Use
  Company Number: FR-009507513-1906FRA004736

PATIENT
  Age: 51 Year
  Sex: Female

DRUGS (13)
  1. FIDAXOMICIN [Suspect]
     Active Substance: FIDAXOMICIN
     Indication: CLOSTRIDIUM DIFFICILE INFECTION
     Dosage: UNK, UNKNOWN FREQ.
     Route: 065
     Dates: start: 20190320
  2. TAZOCILLINE [Concomitant]
     Active Substance: PIPERACILLIN SODIUM\TAZOBACTAM SODIUM
     Indication: GRAFT VERSUS HOST DISEASE
  3. NEORAL [Concomitant]
     Active Substance: CYCLOSPORINE
     Indication: PRODUCT USED FOR UNKNOWN INDICATION
     Dosage: UNK UNK, UNKNOWN FREQ.
     Route: 065
     Dates: end: 20190320
  4. TAZOCILLINE [Concomitant]
     Active Substance: PIPERACILLIN SODIUM\TAZOBACTAM SODIUM
     Indication: CLOSTRIDIUM DIFFICILE INFECTION
  5. VANCOMYCIN [Concomitant]
     Active Substance: VANCOMYCIN
     Indication: CLOSTRIDIUM DIFFICILE INFECTION
     Dosage: UNK, UNKNOWN FREQ.
     Route: 048
     Dates: start: 20190329
  6. TAZOCILLINE [Concomitant]
     Active Substance: PIPERACILLIN SODIUM\TAZOBACTAM SODIUM
     Indication: CYTOMEGALOVIRUS COLITIS
     Dosage: UNK UNK, UNKNOWN FREQ.
     Route: 065
  7. METRONIDAZOLE. [Concomitant]
     Active Substance: METRONIDAZOLE
     Indication: CYTOMEGALOVIRUS COLITIS
     Dosage: UNK UNK, UNKNOWN FREQ.
     Route: 065
     Dates: end: 20190318
  8. METRONIDAZOLE. [Concomitant]
     Active Substance: METRONIDAZOLE
     Indication: CLOSTRIDIUM DIFFICILE INFECTION
  9. VANCOMYCIN [Concomitant]
     Active Substance: VANCOMYCIN
     Indication: CYTOMEGALOVIRUS COLITIS
     Dosage: 125 MG, Q6H
     Route: 048
     Dates: start: 20190318, end: 20190320
  10. VANCOMYCIN [Concomitant]
     Active Substance: VANCOMYCIN
     Dosage: 125 MILLIGRAM, QOD
     Route: 065
  11. METRONIDAZOLE. [Concomitant]
     Active Substance: METRONIDAZOLE
     Indication: GRAFT VERSUS HOST DISEASE
  12. VANCOMYCIN [Concomitant]
     Active Substance: VANCOMYCIN
     Indication: GRAFT VERSUS HOST DISEASE
     Dosage: 125 MG, Q12H
     Route: 065
     Dates: start: 20190421
  13. VANCOMYCIN [Concomitant]
     Active Substance: VANCOMYCIN
     Dosage: 125 MILLIGRAM, QD
     Route: 065
     Dates: start: 20190421

REACTIONS (6)
  - Vomiting [Recovered/Resolved]
  - Hyperleukocytosis [Recovering/Resolving]
  - Polymerase chain reaction positive [Unknown]
  - Condition aggravated [Unknown]
  - Drug intolerance [Unknown]
  - Diarrhoea [Unknown]

NARRATIVE: CASE EVENT DATE: 201903
